FAERS Safety Report 4393596-X (Version None)
Quarter: 2004Q3

REPORT INFORMATION
  Report Type: 
  Country: None (occurrence: None)
  Receive Date: 20040701
  Receipt Date: 20040618
  Transmission Date: 20050211
  Serious: Yes (Hospitalization)
  Sender: FDA-Public Use
  Company Number: 04P-056-0264636-00

PATIENT
  Age: 45 Year
  Sex: Male

DRUGS (2)
  1. BIAXIN [Suspect]
     Indication: PYREXIA
     Dosage: PER ORAL
     Route: 048
     Dates: start: 20040420, end: 20040503
  2. MOXIFLOXACIN HCL [Concomitant]

REACTIONS (7)
  - ABDOMINAL PAIN [None]
  - ALANINE AMINOTRANSFERASE INCREASED [None]
  - CHOLESTASIS [None]
  - DRUG INEFFECTIVE [None]
  - INFLAMMATION [None]
  - LEUKOCYTOSIS [None]
  - ULTRASOUND SCAN ABNORMAL [None]
